FAERS Safety Report 7300574-7 (Version None)
Quarter: 2011Q1

REPORT INFORMATION
  Report Type: 
  Country: None (occurrence: None)
  Receive Date: 20110218
  Receipt Date: 20110208
  Transmission Date: 20110831
  Serious: No
  Sender: FDA-Public Use
  Company Number: US-BIOGENIDEC-2011BI002416

PATIENT
  Age: 41 Year
  Sex: Female

DRUGS (1)
  1. TYSABRI [Suspect]
     Indication: MULTIPLE SCLEROSIS
     Route: 042
     Dates: start: 20100817

REACTIONS (8)
  - STRESS [None]
  - MUSCULAR WEAKNESS [None]
  - FALL [None]
  - INFLUENZA [None]
  - WEIGHT DECREASED [None]
  - DECREASED APPETITE [None]
  - SNEEZING [None]
  - NASOPHARYNGITIS [None]
